FAERS Safety Report 23394171 (Version 1)
Quarter: 2024Q1

REPORT INFORMATION
  Report Type: Spontaneous
  Country: AT (occurrence: AT)
  Receive Date: 20240111
  Receipt Date: 20240111
  Transmission Date: 20240410
  Serious: Yes (Hospitalization)
  Sender: FDA-Public Use
  Company Number: None

PATIENT
  Age: 41 Year
  Sex: Female
  Weight: 51 kg

DRUGS (7)
  1. SULFASALAZINE [Suspect]
     Active Substance: SULFASALAZINE
     Indication: Polyarthritis
     Dosage: 500 MG, 1-0-1, FREQ:12 H
     Dates: start: 20230915, end: 20230918
  2. SULFASALAZINE [Suspect]
     Active Substance: SULFASALAZINE
     Dosage: 1000 MG, 2-0-2, FREQ:12 H
     Dates: start: 20230919, end: 20230922
  3. SULFASALAZINE [Suspect]
     Active Substance: SULFASALAZINE
     Dosage: 1500 MG, 3-0-3, FREQ:12 H
     Dates: start: 20230923, end: 20231009
  4. SULFASALAZINE [Suspect]
     Active Substance: SULFASALAZINE
     Dosage: 3-0-1, FREQ:12 H
     Dates: start: 20231010, end: 20231010
  5. VIMOVO [Concomitant]
     Active Substance: ESOMEPRAZOLE MAGNESIUM\NAPROXEN
     Dosage: UNK
     Dates: start: 20230920, end: 20231009
  6. PREDNISOLONE [Concomitant]
     Active Substance: PREDNISOLONE
     Dosage: DIFFERENT DOSAGES
     Dates: start: 20230914, end: 20231029
  7. DEXIBUPROFEN [Concomitant]
     Active Substance: DEXIBUPROFEN
     Dosage: UNK
     Dates: start: 20231007, end: 20231207

REACTIONS (15)
  - Hepatitis [Recovered/Resolved]
  - Lymphopenia [Recovered/Resolved]
  - Pyrexia [Recovered/Resolved]
  - Chromaturia [Recovered/Resolved]
  - Neck pain [Recovered/Resolved]
  - Drug reaction with eosinophilia and systemic symptoms [Recovered/Resolved]
  - Rash [Recovered/Resolved]
  - Normochromic normocytic anaemia [Recovered/Resolved]
  - Taste disorder [Recovered/Resolved]
  - Tongue coated [Not Recovered/Not Resolved]
  - Leukopenia [Recovered/Resolved]
  - Decreased appetite [Not Recovered/Not Resolved]
  - Salivary hypersecretion [Recovered/Resolved]
  - Nausea [Recovered/Resolved]
  - Vasodilatation [Not Recovered/Not Resolved]

NARRATIVE: CASE EVENT DATE: 20231001
